FAERS Safety Report 7797505-2 (Version None)
Quarter: 2011Q4

REPORT INFORMATION
  Report Type: 
  Country: None (occurrence: None)
  Receive Date: 20111005
  Receipt Date: 20110927
  Transmission Date: 20120403
  Serious: Yes (Other)
  Sender: FDA-Public Use
  Company Number: US-BAYER-2011-071542

PATIENT
  Age: 60 Year
  Sex: Male

DRUGS (2)
  1. NEXAVAR [Suspect]
     Dosage: 400 MG, BID
     Route: 048
     Dates: start: 20110730
  2. NEXAVAR [Suspect]
     Indication: HEPATIC NEOPLASM MALIGNANT
     Dosage: 200 MG, BID
     Route: 048
     Dates: start: 20110801

REACTIONS (11)
  - DIARRHOEA [None]
  - APPETITE DISORDER [None]
  - AGEUSIA [None]
  - BLOOD BILIRUBIN INCREASED [None]
  - OROPHARYNGEAL PAIN [None]
  - ODYNOPHAGIA [None]
  - MOUTH ULCERATION [None]
  - FATIGUE [None]
  - DRY MOUTH [None]
  - STOMATITIS [None]
  - TOOTH ABSCESS [None]
